FAERS Safety Report 4617436-6 (Version None)
Quarter: 2005Q1

REPORT INFORMATION
  Report Type: 
  Country: None (occurrence: None)
  Receive Date: 20050324
  Receipt Date: 20050314
  Transmission Date: 20050727
  Serious: Yes (Other)
  Sender: FDA-Public Use
  Company Number: US-SOLVAY-00205000794

PATIENT
  Age: 41 Year
  Sex: Male

DRUGS (3)
  1. AZATHIOPRINE [Concomitant]
     Indication: ILL-DEFINED DISORDER
     Dosage: DAILY DOSE:  UNKNOWN
     Route: 048
  2. 5-ASA(MANUFACTURER UNKNOWN) [Suspect]
     Indication: COLITIS ULCERATIVE
     Dosage: DAILY DOSE:  UNKNOWN
     Route: 048
  3. 5-ASA (MANUFACTURER UNKNOWN) [Suspect]
     Dosage: DAILY DOSE:  UNKNOWN
     Route: 054

REACTIONS (10)
  - ABNORMAL FAECES [None]
  - AUTOIMMUNE DISORDER [None]
  - HAEMATOCHEZIA [None]
  - LICHEN PLANUS [None]
  - ONYCHOLYSIS [None]
  - PEMPHIGOID [None]
  - PRURITUS [None]
  - RECTAL TENESMUS [None]
  - SKIN FRAGILITY [None]
  - SKIN TEST POSITIVE [None]
